FAERS Safety Report 7809332-8 (Version None)
Quarter: 2011Q4

REPORT INFORMATION
  Report Type: 
  Country: None (occurrence: None)
  Receive Date: 20111006
  Receipt Date: 20110924
  Transmission Date: 20120403
  Serious: Yes (Hospitalization)
  Sender: FDA-Public Use
  Company Number: 2011AP002175

PATIENT
  Age: 64 Year
  Sex: Female

DRUGS (5)
  1. LORAZEPAM [Concomitant]
  2. MIRTAZAPINE [Concomitant]
  3. CARBAMAZEPINE [Suspect]
     Indication: FRONTOTEMPORAL DEMENTIA
     Dosage: 100 MG;TID
  4. NICOTINE [Concomitant]
  5. OLANZAPINE [Concomitant]

REACTIONS (5)
  - TACHYPNOEA [None]
  - ENTERITIS [None]
  - DRUG RASH WITH EOSINOPHILIA AND SYSTEMIC SYMPTOMS [None]
  - CHRONIC OBSTRUCTIVE PULMONARY DISEASE [None]
  - RHONCHI [None]
